FAERS Safety Report 4699269-8 (Version None)
Quarter: 2005Q2

REPORT INFORMATION
  Report Type: 
  Country: None (occurrence: None)
  Receive Date: 20050624
  Receipt Date: 20050318
  Transmission Date: 20051028
  Serious: Yes (Hospitalization, Other)
  Sender: FDA-Public Use
  Company Number: US-MERCK-0503USA03809

PATIENT
  Sex: Female
  Weight: 50 kg

DRUGS (1)
  1. VIOXX [Suspect]
     Indication: OSTEOARTHRITIS
     Route: 048
     Dates: start: 20030201, end: 20031101

REACTIONS (28)
  - ABDOMINAL PAIN UPPER [None]
  - ASTHMA [None]
  - ATHEROSCLEROSIS [None]
  - BLOOD CHOLESTEROL INCREASED [None]
  - BONE DISORDER [None]
  - CEREBROVASCULAR ACCIDENT [None]
  - CHEST PAIN [None]
  - DYSPEPSIA [None]
  - EMBOLISM [None]
  - FLATULENCE [None]
  - HAEMATOCHEZIA [None]
  - HAEMOPTYSIS [None]
  - HAEMORRHAGE [None]
  - HEADACHE [None]
  - HYPERTENSION [None]
  - HYPOAESTHESIA [None]
  - MUSCLE SPASMS [None]
  - OVERDOSE [None]
  - PAIN [None]
  - PALPITATIONS [None]
  - PANCREATITIS [None]
  - PEPTIC ULCER [None]
  - SHOULDER ARTHROPLASTY [None]
  - SKIN INFECTION [None]
  - SLEEP APNOEA SYNDROME [None]
  - SWELLING [None]
  - THROMBOSIS [None]
  - TREMOR [None]
